FAERS Safety Report 9203940 (Version 1)
Quarter: 2013Q1

REPORT INFORMATION
  Report Type: Spontaneous
  Country: US (occurrence: None)
  Receive Date: 20120709
  Receipt Date: 20120709
  Transmission Date: 20140127
  Serious: No
  Sender: FDA-Public Use
  Company Number: 2012HGS-003450

PATIENT
  Age: 67 Year
  Sex: Male
  Weight: 111.13 kg

DRUGS (7)
  1. BENLYSTA [Suspect]
     Dosage: 1 IN 28 D
     Route: 041
     Dates: start: 20120208
  2. MYCOPHENOLATE (MYCOPHENOLATE MOFETIL) (MYCOPHENOLATE MOFETIL) [Concomitant]
  3. PREDNISONE (PREDNISONE) [Concomitant]
  4. HYDROXYCHLOROQUINE (HYDROXYCHLOROQUINE) (HYDROXYCHLOROQUINE) [Concomitant]
  5. NABUMETONE (NABUMETONE) (NABUMETONE) [Concomitant]
  6. TRAMADOL (TRAMADOL) (TRAMADOL) [Concomitant]
  7. HYDROCODONE (HYDROCODONE) (HYDROCODONE) [Concomitant]

REACTIONS (6)
  - Headache [None]
  - Pain in extremity [None]
  - Pruritus [None]
  - Rash pruritic [None]
  - Dry skin [None]
  - Skin discolouration [None]
